FAERS Safety Report 21796359 (Version 1)
Quarter: 2022Q4

REPORT INFORMATION
  Report Type: Spontaneous
  Country: GB (occurrence: GB)
  Receive Date: 20221229
  Receipt Date: 20221229
  Transmission Date: 20230113
  Serious: Yes (Other)
  Sender: FDA-Public Use
  Company Number: None

PATIENT
  Sex: Male
  Weight: 170 kg

DRUGS (5)
  1. OFLOXACIN [Suspect]
     Active Substance: OFLOXACIN
     Indication: Adverse drug reaction
     Dosage: 1 GTT, QID
     Dates: start: 20221209, end: 20221219
  2. OFLOXACIN [Suspect]
     Active Substance: OFLOXACIN
     Dosage: 1 GTT, QID
     Dates: start: 20221209, end: 20221219
  3. BROMFENAC SODIUM [Concomitant]
     Active Substance: BROMFENAC SODIUM
     Indication: Bioptic eye surgery
     Dosage: UNK
     Dates: start: 20221209
  4. ALPHAGAN P [Concomitant]
     Active Substance: BRIMONIDINE TARTRATE
     Indication: Bioptic eye surgery
     Dosage: UNK
     Dates: start: 20221209
  5. PREDNISONE [Concomitant]
     Active Substance: PREDNISONE
     Indication: Bioptic eye surgery
     Dosage: UNK
     Dates: start: 20221209

REACTIONS (2)
  - Blister [Not Recovered/Not Resolved]
  - Rash [Recovering/Resolving]

NARRATIVE: CASE EVENT DATE: 20221214
